FAERS Safety Report 7465565-4 (Version None)
Quarter: 2011Q2

REPORT INFORMATION
  Report Type: 
  Country: None (occurrence: None)
  Receive Date: 20110428
  Receipt Date: 20110411
  Transmission Date: 20111010
  Serious: Yes (Death, Hospitalization, Other)
  Sender: FDA-Public Use
  Company Number: 20110226

PATIENT
  Sex: Female

DRUGS (1)
  1. VENOFER [Suspect]
     Indication: IRON DEFICIENCY ANAEMIA
     Dosage: 1000 MG OVER 6 HOURS
     Dates: start: 20110319, end: 20110319

REACTIONS (4)
  - SEPTIC SHOCK [None]
  - OVERDOSE [None]
  - ISCHAEMIC HEPATITIS [None]
  - ANAPHYLACTIC REACTION [None]
